FAERS Safety Report 5071821-X (Version None)
Quarter: 2006Q3

REPORT INFORMATION
  Report Type: 
  Country: None (occurrence: None)
  Receive Date: 20060801
  Receipt Date: 20060727
  Transmission Date: 20061208
  Serious: Yes (Other)
  Sender: FDA-Public Use
  Company Number: HQWYE626806JUL06

PATIENT
  Age: 71 Year
  Sex: Male

DRUGS (5)
  1. RAPAMUNE [Suspect]
     Indication: PROPHYLAXIS AGAINST TRANSPLANT REJECTION
     Dosage: 2 MG IN AM AND 3 MG AT NIGHT
     Route: 048
     Dates: start: 20040914, end: 20060707
  2. SIMVASTATIN [Concomitant]
  3. ROXITHROMYCIN [Concomitant]
  4. INHIBACE /SWE/ (CILAZAPRIL) [Concomitant]
  5. INHIBACE PLUS (CILAZAPRIL/HYDROCHLOROTHIAZIDE) [Concomitant]

REACTIONS (6)
  - CARDIAC FAILURE [None]
  - CONGESTIVE CARDIOMYOPATHY [None]
  - CORONARY ARTERY STENOSIS [None]
  - DILATATION VENTRICULAR [None]
  - MYOCARDIAL ISCHAEMIA [None]
  - VENTRICULAR HYPOKINESIA [None]
